FAERS Safety Report 9135369 (Version 1)
Quarter: 2013Q1

REPORT INFORMATION
  Report Type: Spontaneous
  Country: US (occurrence: US)
  Receive Date: 20130304
  Receipt Date: 20130304
  Transmission Date: 20140127
  Serious: No
  Sender: FDA-Public Use
  Company Number: US-ENDO PHARMACEUTICALS INC.-ENDC20110098

PATIENT
  Age: 42 None
  Sex: Female
  Weight: 78.09 kg

DRUGS (1)
  1. ENDOCET [Suspect]
     Indication: PAIN
     Dosage: UNKNOWN
     Route: 048
     Dates: start: 201104, end: 201105

REACTIONS (8)
  - Body temperature increased [Not Recovered/Not Resolved]
  - Urinary tract infection [Recovered/Resolved]
  - Chest pain [Not Recovered/Not Resolved]
  - Hyperhidrosis [Not Recovered/Not Resolved]
  - Nausea [Unknown]
  - Diarrhoea [Unknown]
  - Abdominal pain upper [Unknown]
  - Fatigue [Unknown]
